FAERS Safety Report 11320584 (Version 2)
Quarter: 2015Q3

REPORT INFORMATION
  Report Type: Report from Study
  Country: BR (occurrence: BR)
  Receive Date: 20150729
  Receipt Date: 20150815
  Transmission Date: 20151125
  Serious: Yes (Death, Hospitalization, Other)
  Sender: FDA-Public Use
  Company Number: BR-ABBVIE-15K-020-1424316-00

PATIENT
  Sex: Male
  Weight: 95 kg

DRUGS (2)
  1. HUMIRA [Suspect]
     Active Substance: ADALIMUMAB
     Route: 058
     Dates: end: 20150611
  2. HUMIRA [Suspect]
     Active Substance: ADALIMUMAB
     Indication: CROHN^S DISEASE
     Dosage: UNSPECIFIED LOADING DOSE
     Route: 058
     Dates: start: 20141119, end: 20141119

REACTIONS (4)
  - Dyspnoea [Fatal]
  - Haemorrhagic stroke [Fatal]
  - Pneumonitis [Fatal]
  - Sinusitis [Fatal]

NARRATIVE: CASE EVENT DATE: 2015
